FAERS Safety Report 9917617 (Version 2)
Quarter: 2014Q2

REPORT INFORMATION
  Report Type: Report from Study
  Country: GB (occurrence: GB)
  Receive Date: 20140221
  Receipt Date: 20140604
  Transmission Date: 20141212
  Serious: Yes (Hospitalization)
  Sender: FDA-Public Use
  Company Number: PHHY2014GB019748

PATIENT
  Age: 68 Year
  Sex: Male

DRUGS (20)
  1. IRINOTECAN [Suspect]
     Indication: COLORECTAL CANCER METASTATIC
     Dosage: 380 MG, 1 IN 2 WK
     Route: 042
     Dates: start: 20130509
  2. IRINOTECAN [Suspect]
     Dosage: 310 MG, UNK
     Route: 042
     Dates: start: 20130801
  3. CALCIUM FOLINATE [Suspect]
     Dosage: 425 MG, UNK
     Route: 042
     Dates: start: 20130509
  4. CALCIUM FOLINATE [Suspect]
     Dosage: 820 MG, 1 IN 2 WK
     Route: 042
     Dates: start: 20130801
  5. 5 FLUORO URACIL [Suspect]
     Indication: COLORECTAL CANCER METASTATIC
     Dosage: 825 MG, UNK
     Route: 040
     Dates: start: 20130509
  6. 5 FLUORO URACIL [Suspect]
     Dosage: 5000 MG, UNK
     Route: 041
     Dates: start: 20130509
  7. 5 FLUORO URACIL [Suspect]
     Dosage: 820 MG, 1 IN 2 WK
     Route: 042
     Dates: start: 20130801
  8. PARACETAMOL [Concomitant]
     Indication: ABDOMINAL PAIN
     Route: 048
  9. PARACETAMOL [Concomitant]
     Indication: PROPHYLAXIS
     Route: 048
  10. PARACETAMOL [Concomitant]
     Route: 042
  11. CHLORPHENAMINE [Concomitant]
     Indication: PROPHYLAXIS
     Dosage: 10 MG, DAILY
     Route: 042
     Dates: start: 20130509, end: 20130509
  12. FRAGMIN [Concomitant]
     Indication: PROPHYLAXIS
     Dosage: 5000 DF, UNK
     Route: 058
     Dates: start: 20130515, end: 20130516
  13. RANITIDINE [Concomitant]
     Indication: PROPHYLAXIS
     Dosage: 150 MG, UNK
     Route: 048
     Dates: start: 20130515, end: 20130516
  14. METOCLOPRAMIDE [Concomitant]
     Dosage: 10 MG, UNK
     Route: 042
     Dates: start: 20130515, end: 20130516
  15. IBUPROFEN [Concomitant]
     Indication: ABDOMINAL PAIN UPPER
     Dosage: 400 MG, UNK
     Route: 048
     Dates: start: 20130522
  16. CANESTEN [Concomitant]
     Indication: PENILE PAIN
     Dosage: 1 DF, UNK
     Route: 061
     Dates: start: 20130529
  17. GAVISCON                           /00480201/ [Concomitant]
     Dosage: 15 MG, UNK
     Route: 048
     Dates: start: 20130529
  18. ACICLOVIR [Concomitant]
     Indication: PENILE PAIN
     Dosage: 200 MG, UNK
     Route: 048
     Dates: start: 20130529
  19. PIPERACILLIN + TAZOBACTAM [Concomitant]
     Dosage: 4.5 G, UNK
  20. AMOXICILLIN/CLAVULANIC ACID [Concomitant]
     Dosage: 625 MG, UNK
     Dates: start: 20130516

REACTIONS (13)
  - Pyrexia [Recovered/Resolved]
  - Pleuritic pain [Recovered/Resolved]
  - Musculoskeletal chest pain [Unknown]
  - Catheter site pain [Unknown]
  - Lymphocyte count decreased [Unknown]
  - Blood lactate dehydrogenase increased [Unknown]
  - Blood calcium decreased [Unknown]
  - Blood alkaline phosphatase increased [Unknown]
  - Blood potassium decreased [Unknown]
  - Blood bilirubin increased [Unknown]
  - Abdominal pain upper [Recovered/Resolved]
  - Platelet count decreased [Unknown]
  - Red blood cell count decreased [Unknown]
